FAERS Safety Report 6044423-6 (Version None)
Quarter: 2009Q1

REPORT INFORMATION
  Report Type: 
  Country: None (occurrence: None)
  Receive Date: 20090115
  Receipt Date: 20090115
  Transmission Date: 20090719
  Serious: No
  Sender: FDA-Public Use
  Company Number: None

PATIENT
  Sex: Female
  Weight: 86.36 kg

DRUGS (10)
  1. OXYCODONE HCL [Suspect]
     Dosage: 5MG TABLET 5 MG Q4H ORAL
     Route: 048
     Dates: start: 20090109, end: 20090114
  2. ALBUTEROL [Concomitant]
  3. ERGOCALCIFEROL [Concomitant]
  4. FENTANYL CITRATE [Concomitant]
  5. FLUCINOLONE [Concomitant]
  6. GLUCOPHAGE [Concomitant]
  7. LEVOTHYROXINE SODIUM [Concomitant]
  8. LORAZEPAM [Concomitant]
  9. METROGEL VAGINAL (METRONIDAZOLE 0.75 % VAGIANL) [Concomitant]
  10. TAMOXIFEN CITRATE [Concomitant]

REACTIONS (1)
  - URTICARIA [None]
